FAERS Safety Report 9178686 (Version 1)
Quarter: 2012Q4

REPORT INFORMATION
  Report Type: 
  Country: SE (occurrence: SE)
  Receive Date: 20121029
  Receipt Date: 20121029
  Transmission Date: 20130627
  Serious: Yes (Hospitalization)
  Sender: FDA-Public Use
  Company Number: SE-SANOFI-AVENTIS-2012SA077476

PATIENT
  Age: 75 Year
  Sex: Male

DRUGS (23)
  1. LASIX RETARD [Suspect]
     Indication: DRUG USE FOR UNKNOWN INDICATION
     Route: 065
  2. RAMIPRIL [Suspect]
     Indication: DRUG USE FOR UNKNOWN INDICATION
     Route: 065
  3. MERCAPTOPURINE [Suspect]
     Indication: ULCERATIVE COLITIS
     Route: 065
  4. OXIS TURBUHALER ^DRACO^ [Concomitant]
  5. TRAMADOL [Concomitant]
  6. ALVEDON [Concomitant]
     Dosage: strength; 665 mg
  7. ASACOL [Concomitant]
     Dosage: strength; 800 mg
  8. SPIRIVA [Concomitant]
  9. KALCIPOS-D [Concomitant]
  10. NORSPAN [Concomitant]
  11. OMEPRAZOLE [Concomitant]
  12. METFORMIN [Concomitant]
  13. ZOLPIDEM [Concomitant]
  14. ALENDRONIC ACID [Concomitant]
  15. FOLACIN [Concomitant]
     Dosage: strength; 5 mg
  16. COCILLANA-ETYFIN [Concomitant]
  17. PREDNISOLONE [Concomitant]
  18. SOTALOL HYDROCHLORIDE [Concomitant]
  19. TROMBYL [Concomitant]
     Dosage: strength; 75 mg
  20. ACETYLCYSTEINE [Concomitant]
  21. SPIRONOLACTONE [Concomitant]
  22. ALLOPURINOL [Concomitant]
  23. ROSUVASTATIN CALCIUM [Concomitant]

REACTIONS (4)
  - Hepatotoxicity [Unknown]
  - Gamma-glutamyltransferase increased [Unknown]
  - Renal failure acute [Unknown]
  - Blood creatinine increased [Unknown]
